FAERS Safety Report 9398054 (Version 1)
Quarter: 2013Q3

REPORT INFORMATION
  Report Type: Spontaneous
  Country: US (occurrence: US)
  Receive Date: 20130712
  Receipt Date: 20130712
  Transmission Date: 20140515
  Serious: No
  Sender: FDA-Public Use
  Company Number: US-GLAXOSMITHKLINE-A0834972A

PATIENT
  Age: 71 Year
  Sex: Female

DRUGS (2)
  1. FLOVENT [Suspect]
     Indication: CHRONIC OBSTRUCTIVE PULMONARY DISEASE
     Dosage: 2PUFF PER DAY
     Route: 055
     Dates: start: 20091110
  2. SPIRIVA [Concomitant]

REACTIONS (4)
  - Lung disorder [Recovered/Resolved]
  - Glossodynia [Recovered/Resolved]
  - Drug ineffective [Recovered/Resolved]
  - Drug dispensing error [Unknown]
